FAERS Safety Report 22680566 (Version 5)
Quarter: 2023Q4

REPORT INFORMATION
  Report Type: Report from Study
  Country: FR (occurrence: FR)
  Receive Date: 20230707
  Receipt Date: 20231205
  Transmission Date: 20240110
  Serious: Yes (Other)
  Sender: FDA-Public Use
  Company Number: FR-KOREA IPSEN Pharma-2023-15953

PATIENT

DRUGS (22)
  1. CABOZANTINIB [Suspect]
     Active Substance: CABOZANTINIB
     Indication: Renal cell carcinoma
     Dosage: 40 MG, QD
     Route: 048
     Dates: start: 20230120, end: 20230303
  2. CABOZANTINIB [Suspect]
     Active Substance: CABOZANTINIB
     Dosage: 20 MG, QD
     Route: 048
     Dates: start: 20230328, end: 20230420
  3. CABOZANTINIB [Suspect]
     Active Substance: CABOZANTINIB
     Dosage: 20 MG, QD
     Route: 048
     Dates: start: 20230531, end: 20230714
  4. CABOZANTINIB [Suspect]
     Active Substance: CABOZANTINIB
     Dosage: 10 MG, QD
     Route: 048
     Dates: start: 20230715, end: 20230919
  5. CABOZANTINIB [Suspect]
     Active Substance: CABOZANTINIB
     Dosage: 10 MG, QD
     Route: 048
     Dates: start: 20230927
  6. NIVOLUMAB [Suspect]
     Active Substance: NIVOLUMAB
     Indication: Renal cell carcinoma
     Dosage: 480 MG ONCE
     Route: 042
     Dates: start: 20221223
  7. NIVOLUMAB [Suspect]
     Active Substance: NIVOLUMAB
     Dosage: 480 MG ONCE
     Route: 042
     Dates: start: 20230120
  8. NIVOLUMAB [Suspect]
     Active Substance: NIVOLUMAB
     Dosage: 480 MG, ONCE
     Route: 042
     Dates: start: 20230217
  9. NIVOLUMAB [Suspect]
     Active Substance: NIVOLUMAB
     Dosage: 480 MG, ONCE
     Route: 042
     Dates: start: 20230317
  10. NIVOLUMAB [Suspect]
     Active Substance: NIVOLUMAB
     Dosage: 480 MG, ONCE
     Route: 042
     Dates: start: 20230510
  11. NIVOLUMAB [Suspect]
     Active Substance: NIVOLUMAB
     Dosage: 480 MG ONCE
     Route: 042
     Dates: start: 20230607
  12. NIVOLUMAB [Suspect]
     Active Substance: NIVOLUMAB
     Dosage: 480 MG ONCE
     Route: 042
     Dates: start: 20230630
  13. NIVOLUMAB [Suspect]
     Active Substance: NIVOLUMAB
     Dosage: 480 MG ONCE
     Route: 042
     Dates: start: 20230728
  14. NIVOLUMAB [Suspect]
     Active Substance: NIVOLUMAB
     Dosage: 480 MG ONCE
     Route: 042
     Dates: start: 20230825
  15. NIVOLUMAB [Suspect]
     Active Substance: NIVOLUMAB
     Dosage: 480 MG ONCE
     Route: 042
     Dates: start: 20230922
  16. NIVOLUMAB [Suspect]
     Active Substance: NIVOLUMAB
     Dosage: 480 MG ONCE
     Route: 042
     Dates: start: 20231027
  17. NIVOLUMAB [Suspect]
     Active Substance: NIVOLUMAB
     Dosage: 480 MG ONCE
     Route: 042
     Dates: start: 20231124
  18. LOVENOX [Concomitant]
     Active Substance: ENOXAPARIN SODIUM
     Indication: Prophylaxis
     Dosage: UNK
     Route: 058
     Dates: start: 20221207
  19. BIMATOPROST [Concomitant]
     Active Substance: BIMATOPROST
     Indication: Glaucoma
     Dosage: UNK
  20. LATANOPROST [Concomitant]
     Active Substance: LATANOPROST
     Indication: Glaucoma
     Dosage: UNK
  21. SODIUM HYALURONATE [Concomitant]
     Active Substance: HYALURONATE SODIUM
     Indication: Glaucoma
     Dosage: UNK
  22. TRAMADOL [Concomitant]
     Active Substance: TRAMADOL\TRAMADOL HYDROCHLORIDE
     Indication: Pain
     Dosage: UNK
     Route: 048
     Dates: start: 20230607

REACTIONS (6)
  - Hepatic cytolysis [Recovered/Resolved]
  - Hepatic cytolysis [Recovered/Resolved]
  - Hypothyroidism [Not Recovered/Not Resolved]
  - Mucocutaneous rash [Recovered/Resolved]
  - Mucosal inflammation [Recovered/Resolved]
  - Nausea [Not Recovered/Not Resolved]

NARRATIVE: CASE EVENT DATE: 20230217
